FAERS Safety Report 8916692 (Version 2)
Quarter: 2012Q4

REPORT INFORMATION
  Report Type: 
  Country: JP (occurrence: JP)
  Receive Date: 20121120
  Receipt Date: 20121127
  Transmission Date: 20130627
  Serious: Yes (Other)
  Sender: FDA-Public Use
  Company Number: JP-CELGENEUS-087-21880-12111756

PATIENT
  Sex: Female

DRUGS (2)
  1. REVLIMID [Suspect]
     Indication: MULTIPLE MYELOMA
     Route: 048
  2. OXYCODONE HYDROCHLORIDE [Suspect]
     Indication: PAIN
     Dosage: 120 Milligram
     Route: 048

REACTIONS (1)
  - Delirium [Unknown]
